FAERS Safety Report 5816766-X (Version None)
Quarter: 2008Q3

REPORT INFORMATION
  Report Type: 
  Country: None (occurrence: None)
  Receive Date: 20080721
  Receipt Date: 20080721
  Transmission Date: 20090109
  Serious: No
  Sender: FDA-Public Use
  Company Number: US-BOEHRINGER INGELHEIM GMBH, GERMANY-2007-BP-12169BP

PATIENT
  Sex: Female
  Weight: 54 kg

DRUGS (8)
  1. MIRAPEX [Suspect]
     Indication: PARKINSON'S DISEASE
     Route: 048
     Dates: start: 19990426, end: 20060615
  2. ELDEPRYL [Concomitant]
     Dates: start: 19980903, end: 20000101
  3. TENORMIN [Concomitant]
     Route: 048
  4. VITAMIN B COMPLEX CAP [Concomitant]
     Route: 048
  5. VITAMIN E [Concomitant]
     Route: 048
  6. ASCORBIC ACID [Concomitant]
     Route: 048
  7. VITAMIN A [Concomitant]
     Route: 048
  8. LEVOTHYROXINE SODIUM [Concomitant]
     Dates: start: 19990121, end: 20000620

REACTIONS (5)
  - EMOTIONAL DISTRESS [None]
  - HALLUCINATION [None]
  - INJURY [None]
  - OBSESSIVE-COMPULSIVE DISORDER [None]
  - PATHOLOGICAL GAMBLING [None]
